FAERS Safety Report 5036789-0 (Version None)
Quarter: 2006Q2

REPORT INFORMATION
  Report Type: 
  Country: None (occurrence: None)
  Receive Date: 20060601
  Receipt Date: 20050824
  Transmission Date: 20061013
  Serious: Yes (Other)
  Sender: FDA-Public Use
  Company Number: 2005US001184

PATIENT
  Age: 49 Year
  Sex: Male
  Weight: 98.1 kg

DRUGS (15)
  1. PROGRAF [Suspect]
     Indication: PROPHYLAXIS AGAINST TRANSPLANT REJECTION
     Dosage: 7.00 MG, UID/QD
     Dates: start: 20041111
  2. SENSIPAR [Suspect]
     Indication: HYPERPARATHYROIDISM SECONDARY
     Dosage: 30.00 MG, UID/QD, ORAL
     Route: 048
     Dates: start: 20050303, end: 20050615
  3. ATORVASTATIN CALCIUM [Concomitant]
  4. MYCOPHENOLATE MOFETIL [Concomitant]
  5. PREDNISONE TAB [Concomitant]
  6. DILTIAZEM HYDROCHLORIDE [Concomitant]
  7. ACYCLOVIR [Concomitant]
  8. TRIMETOPRIM-SULFA (SULFAMETHOXAZOLE, TRIMETHOPRIM) [Concomitant]
  9. LISINOPRIL [Concomitant]
  10. METOPROLOL (METOPROLOL) [Concomitant]
  11. ACETYLSALICYLIC ACID SRT [Concomitant]
  12. ALLOPURINOL [Concomitant]
  13. ALENDRONATE SODIUM [Concomitant]
  14. INSULIN [Concomitant]
  15. RANITIDINE HYDROCHLORIDE [Concomitant]

REACTIONS (4)
  - BLOOD CREATININE INCREASED [None]
  - DIARRHOEA [None]
  - DRUG LEVEL INCREASED [None]
  - TREMOR [None]
